FAERS Safety Report 25903704 (Version 1)
Quarter: 2025Q4

REPORT INFORMATION
  Report Type: Spontaneous
  Country: US (occurrence: US)
  Receive Date: 20251010
  Receipt Date: 20251010
  Transmission Date: 20260118
  Serious: No
  Sender: GLAXOSMITHKLINE
  Company Number: US-GSK-US2025AMR110826

PATIENT

DRUGS (4)
  1. BENLYSTA [Suspect]
     Active Substance: BELIMUMAB
     Indication: Systemic lupus erythematosus
     Dosage: UNK
  2. BENLYSTA [Suspect]
     Active Substance: BELIMUMAB
     Indication: Acute kidney injury
  3. BENLYSTA [Suspect]
     Active Substance: BELIMUMAB
     Indication: Hyponatraemia
  4. BENLYSTA [Suspect]
     Active Substance: BELIMUMAB
     Indication: Blood osmolarity decreased

REACTIONS (1)
  - Off label use [Unknown]
